FAERS Safety Report 8764784 (Version 2)
Quarter: 2012Q4

REPORT INFORMATION
  Report Type: 
  Country: BE (occurrence: BE)
  Receive Date: 20120831
  Receipt Date: 20120910
  Transmission Date: 20130627
  Serious: No
  Sender: FDA-Public Use
  Company Number: BE-ROCHE-1110890

PATIENT
  Age: 60 Year
  Sex: Female
  Weight: 66.5 kg

DRUGS (4)
  1. HERCEPTIN [Suspect]
     Indication: BREAST CANCER
     Route: 042
     Dates: start: 20111216
  2. ARIMIDEX [Suspect]
     Indication: BREAST CANCER
     Route: 048
     Dates: start: 201202
  3. LIPITOR [Suspect]
     Indication: HYPERLIPIDAEMIA
     Route: 065
  4. LORAMET [Concomitant]
     Indication: INSOMNIA
     Route: 048

REACTIONS (1)
  - Angioedema [Recovered/Resolved]
